FAERS Safety Report 14985523 (Version 3)
Quarter: 2018Q3

REPORT INFORMATION
  Report Type: Report from Study
  Country: DK (occurrence: DK)
  Receive Date: 20180607
  Receipt Date: 20180716
  Transmission Date: 20181010
  Serious: Yes (Hospitalization)
  Sender: FDA-Public Use
  Company Number: DK-PFIZER INC-2018226733

PATIENT
  Age: 74 Year
  Sex: Male
  Weight: 94 kg

DRUGS (13)
  1. TOPOTECAN HYDROCHLORIDE. [Suspect]
     Active Substance: TOPOTECAN HYDROCHLORIDE
     Indication: SMALL CELL LUNG CANCER
     Dosage: 1.5 MG/M2, DAYS 1?5 OF EACH 21 DAY CYCLE
     Route: 042
     Dates: start: 20180205, end: 20180209
  2. TOPOTECAN HYDROCHLORIDE. [Suspect]
     Active Substance: TOPOTECAN HYDROCHLORIDE
     Dosage: 1.6 MG/M2, UNK
     Route: 042
     Dates: start: 20180326
  3. FENTANYL. [Concomitant]
     Active Substance: FENTANYL
     Indication: PAIN
     Dosage: UNK
     Route: 003
     Dates: start: 20171018
  4. ATORVASTATINE /01326102/ [Concomitant]
     Indication: HYPERCHOLESTEROLAEMIA
     Dosage: 20 MG, 1X/DAY
     Route: 048
     Dates: start: 20161010
  5. DAPAGLIFLOZIN. [Concomitant]
     Active Substance: DAPAGLIFLOZIN
     Indication: DIABETES MELLITUS
     Dosage: 10 MG, 1X/DAY
     Route: 048
     Dates: start: 20140228
  6. TOPOTECAN HYDROCHLORIDE. [Suspect]
     Active Substance: TOPOTECAN HYDROCHLORIDE
     Dosage: 1.6 MG/M2, DAYS 1?5 OF EACH 21 DAY CYCLE
     Route: 042
     Dates: start: 20180226, end: 20180226
  7. FENTANYL. [Concomitant]
     Active Substance: FENTANYL
     Indication: INTERMITTENT CLAUDICATION
  8. ENALAPRIL [Concomitant]
     Active Substance: ENALAPRIL
     Indication: HYPERTENSION
     Dosage: 20 MG, 1X/DAY, (10 MG, 2 IN 1 D)
     Route: 048
     Dates: start: 20160311
  9. AMLODIPINE [Concomitant]
     Active Substance: AMLODIPINE BESYLATE
     Indication: HYPERTENSION
     Dosage: 10 MG, 1X/DAY
     Route: 048
     Dates: start: 20160906
  10. METFORMIN [Concomitant]
     Active Substance: METFORMIN HYDROCHLORIDE
     Indication: DIABETES MELLITUS
     Dosage: 2000 MG, 1X/DAY, (1000 MG, 2 IN 1 D)
     Route: 048
     Dates: start: 20161010
  11. PARACETAMOL [Concomitant]
     Active Substance: ACETAMINOPHEN
     Indication: PAIN
     Dosage: 4000 MG, DAILY, (1000 MG, 4 IN 1 D)
     Route: 048
     Dates: start: 20170815
  12. TRAMADOL. [Concomitant]
     Active Substance: TRAMADOL
     Indication: PAIN
     Dosage: 50 MG, AS NEEDED
     Route: 048
     Dates: start: 20180108
  13. INSULIN GLARGINE [Concomitant]
     Active Substance: INSULIN GLARGINE
     Indication: DIABETES MELLITUS
     Dosage: 100 IU, 1X/DAY
     Route: 058
     Dates: start: 20160906

REACTIONS (8)
  - Influenza [Recovered/Resolved]
  - Neutrophil count increased [Unknown]
  - White blood cell count increased [Unknown]
  - Fatigue [Not Recovered/Not Resolved]
  - Cough [Not Recovered/Not Resolved]
  - C-reactive protein increased [Unknown]
  - Pyrexia [Not Recovered/Not Resolved]
  - Blood potassium decreased [Unknown]

NARRATIVE: CASE EVENT DATE: 20180314
